FAERS Safety Report 5721187-4 (Version None)
Quarter: 2008Q2

REPORT INFORMATION
  Report Type: 
  Country: None (occurrence: None)
  Receive Date: 20080429
  Receipt Date: 20080417
  Transmission Date: 20081010
  Serious: Yes (Hospitalization, Other)
  Sender: FDA-Public Use
  Company Number: FR-GILEAD-2008-0016153

PATIENT
  Sex: Female

DRUGS (4)
  1. TRUVADA [Suspect]
     Indication: HIV INFECTION
     Route: 048
     Dates: start: 20070711, end: 20071019
  2. NORVIR [Concomitant]
     Indication: HIV INFECTION
     Route: 048
     Dates: start: 20070711, end: 20071009
  3. TELZIR [Concomitant]
     Indication: HIV INFECTION
     Route: 048
     Dates: start: 20070212, end: 20071009
  4. ASPIRIN [Concomitant]
     Route: 048

REACTIONS (8)
  - CANDIDIASIS [None]
  - DIARRHOEA [None]
  - ESCHERICHIA SEPSIS [None]
  - NEUROLOGICAL SYMPTOM [None]
  - PYELONEPHRITIS ACUTE [None]
  - PYREXIA [None]
  - RENAL FAILURE ACUTE [None]
  - SYSTEMIC INFLAMMATORY RESPONSE SYNDROME [None]
